FAERS Safety Report 21199073 (Version 1)
Quarter: 2022Q3

REPORT INFORMATION
  Report Type: Spontaneous
  Country: GB (occurrence: GB)
  Receive Date: 20220811
  Receipt Date: 20220811
  Transmission Date: 20221026
  Serious: Yes (Other)
  Sender: FDA-Public Use
  Company Number: GB-MHRA-TPP34596549C8943478YC1659023904766

PATIENT
  Age: 64 Year
  Sex: Female
  Weight: 69 kg

DRUGS (4)
  1. ARIPIPRAZOLE [Suspect]
     Active Substance: ARIPIPRAZOLE
     Indication: Product used for unknown indication
     Dosage: 1 MANE   AS PER SPECIALIST
     Route: 048
     Dates: start: 20220708, end: 20220709
  2. ORLISTAT [Concomitant]
     Active Substance: ORLISTAT
     Indication: Product used for unknown indication
     Dosage: TAKE ONE CAPSULE IMMEDIATELY BEFORE, DURING, OR...
     Route: 065
     Dates: start: 20220624
  3. ZALURON XL [Concomitant]
     Indication: Product used for unknown indication
     Dosage: 1 DAILY
     Route: 065
     Dates: start: 20191031, end: 20220708
  4. ZOPICLONE [Concomitant]
     Active Substance: ZOPICLONE
     Indication: Product used for unknown indication
     Dosage: TAKE ONE TABLET AT NIGHT WHEN REQUIRED TO HELP ...
     Route: 065
     Dates: start: 20220708, end: 20220715

REACTIONS (4)
  - Generalised tonic-clonic seizure [Recovered/Resolved]
  - Syncope [Unknown]
  - Nausea [Unknown]
  - Vomiting [Unknown]

NARRATIVE: CASE EVENT DATE: 20220709
